FAERS Safety Report 20173434 (Version 1)
Quarter: 2021Q4

REPORT INFORMATION
  Report Type: Spontaneous
  Country: US (occurrence: US)
  Receive Date: 20211212
  Receipt Date: 20211212
  Transmission Date: 20220304
  Serious: No
  Sender: FDA-Public Use
  Company Number: US-JNJFOC-20211213088

PATIENT
  Age: 76 Year
  Sex: Female

DRUGS (3)
  1. XARELTO [Interacting]
     Active Substance: RIVAROXABAN
     Indication: Thrombosis
     Route: 048
  2. TREPROSTINIL SODIUM [Interacting]
     Active Substance: TREPROSTINIL SODIUM
     Indication: Pulmonary arterial hypertension
     Dosage: 54 UG (9 BREATHS), FOUR TIMES A DAY (QID) VIA INHALATION (IH) ROUTE
     Route: 048
     Dates: start: 20210708
  3. FLONASE [Interacting]
     Active Substance: FLUTICASONE PROPIONATE
     Indication: Product used for unknown indication
     Route: 065

REACTIONS (2)
  - Epistaxis [Unknown]
  - Drug interaction [Unknown]
